FAERS Safety Report 21184847 (Version 1)
Quarter: 2022Q3

REPORT INFORMATION
  Report Type: Spontaneous
  Country: US (occurrence: None)
  Receive Date: 20220806
  Receipt Date: 20220806
  Transmission Date: 20221026
  Serious: Yes (Other)
  Sender: FDA-Public Use
  Company Number: None

PATIENT
  Age: 35 Year
  Sex: Female
  Weight: 60.75 kg

DRUGS (3)
  1. ZYRTEC [Suspect]
     Active Substance: CETIRIZINE HYDROCHLORIDE
     Indication: Hypersensitivity
     Dosage: FREQUENCY : AT BEDTIME;?
     Route: 048
     Dates: start: 20140901, end: 20220803
  2. Lo loestrin birth control [Concomitant]
  3. VITAMINS [Concomitant]
     Active Substance: VITAMINS

REACTIONS (2)
  - Withdrawal syndrome [None]
  - Pruritus [None]

NARRATIVE: CASE EVENT DATE: 20220804
